FAERS Safety Report 16358016 (Version 3)
Quarter: 2019Q4

REPORT INFORMATION
  Report Type: Spontaneous
  Country: JP (occurrence: JP)
  Receive Date: 20190527
  Receipt Date: 20191001
  Transmission Date: 20200122
  Serious: Yes (Hospitalization, Other)
  Sender: FDA-Public Use
  Company Number: PHJP2019JP005646

PATIENT
  Sex: Male

DRUGS (3)
  1. VOTRIENT [Suspect]
     Active Substance: PAZOPANIB HYDROCHLORIDE
     Indication: RENAL CELL CARCINOMA
     Dosage: 800 MG, QD
     Route: 048
     Dates: start: 201807
  2. VOTRIENT [Suspect]
     Active Substance: PAZOPANIB HYDROCHLORIDE
     Dosage: 200 MG, QD
     Route: 048
  3. VOTRIENT [Suspect]
     Active Substance: PAZOPANIB HYDROCHLORIDE
     Dosage: 400 MG, QD
     Route: 048

REACTIONS (10)
  - Abdominal pain [Recovered/Resolved]
  - Liver disorder [Recovered/Resolved]
  - Malignant neoplasm progression [Unknown]
  - Gait disturbance [Recovered/Resolved]
  - Headache [Unknown]
  - Diarrhoea [Unknown]
  - Renal cell carcinoma [Unknown]
  - Hypertension [Unknown]
  - Metastases to lung [Unknown]
  - Taste disorder [Unknown]
